FAERS Safety Report 22264647 (Version 1)
Quarter: 2023Q2

REPORT INFORMATION
  Report Type: Spontaneous
  Country: US (occurrence: None)
  Receive Date: 20230426
  Receipt Date: 20230426
  Transmission Date: 20230722
  Serious: Yes (Hospitalization)
  Sender: FDA-Public Use
  Company Number: None

PATIENT
  Age: 65 Year
  Sex: Female
  Weight: 58.7 kg

DRUGS (2)
  1. FLUDARABINE [Suspect]
     Active Substance: FLUDARABINE PHOSPHATE
  2. CYCLOPHOSPHAMIDE [Suspect]
     Active Substance: CYCLOPHOSPHAMIDE

REACTIONS (16)
  - Cytokine release syndrome [None]
  - Fatigue [None]
  - C-reactive protein increased [None]
  - Serum ferritin increased [None]
  - Neurotoxicity [None]
  - Dysphagia [None]
  - Memory impairment [None]
  - Depressed level of consciousness [None]
  - Seizure [None]
  - Enterococcal infection [None]
  - Urinary tract infection [None]
  - Orthostatic hypotension [None]
  - Pancytopenia [None]
  - Hypofibrinogenaemia [None]
  - Malnutrition [None]
  - Aphasia [None]

NARRATIVE: CASE EVENT DATE: 20230307
